FAERS Safety Report 18176377 (Version 3)
Quarter: 2021Q1

REPORT INFORMATION
  Report Type: Spontaneous
  Country: US (occurrence: US)
  Receive Date: 20200820
  Receipt Date: 20210315
  Transmission Date: 20210419
  Serious: Yes (Other)
  Sender: FDA-Public Use
  Company Number: US-GLAXOSMITHKLINE-US2020165995

PATIENT
  Sex: Male

DRUGS (4)
  1. RANITIDINE. [Suspect]
     Active Substance: RANITIDINE
     Indication: BLOOD CHOLESTEROL
     Dosage: 150 MG, QD
     Route: 065
     Dates: start: 201601, end: 201911
  2. RANITIDINE. [Suspect]
     Active Substance: RANITIDINE
  3. RANITIDINE. [Suspect]
     Active Substance: RANITIDINE
     Indication: BLOOD CHOLESTEROL
     Dosage: 150 MG, QD
     Route: 065
     Dates: start: 201601, end: 201911
  4. RANITIDINE HCI [Suspect]
     Active Substance: RANITIDINE HYDROCHLORIDE

REACTIONS (1)
  - Prostate cancer [Unknown]
